FAERS Safety Report 8523918-7 (Version None)
Quarter: 2012Q3

REPORT INFORMATION
  Report Type: 
  Country: None (occurrence: None)
  Receive Date: 20120720
  Receipt Date: 20120717
  Transmission Date: 20120928
  Serious: Yes (Hospitalization)
  Sender: FDA-Public Use
  Company Number: IT-BRISTOL-MYERS SQUIBB COMPANY-16690950

PATIENT
  Age: 75 Year
  Sex: Female

DRUGS (1)
  1. COUMADIN [Suspect]
     Indication: PROPHYLAXIS
     Dates: start: 20110101, end: 20120609

REACTIONS (2)
  - BLOOD PRESSURE INCREASED [None]
  - EPISTAXIS [None]
